FAERS Safety Report 25363032 (Version 1)
Quarter: 2025Q2

REPORT INFORMATION
  Report Type: Spontaneous
  Country: ZA (occurrence: ZA)
  Receive Date: 20250527
  Receipt Date: 20250527
  Transmission Date: 20250716
  Serious: Yes (Other)
  Sender: BAYER HEALTHCARE PHARMACEUTICALS INC.
  Company Number: ZA-BAYER-2025A069402

PATIENT
  Age: 52 Year
  Sex: Female

DRUGS (14)
  1. ANGELIQ [Suspect]
     Active Substance: DROSPIRENONE\ESTRADIOL
     Dosage: 1 DF, QD
     Route: 048
  2. GLUCOPHAGE XR [Concomitant]
     Active Substance: METFORMIN HYDROCHLORIDE
     Dosage: 1000 MG, HS
     Route: 048
  3. GLUCOPHAGE XR [Concomitant]
     Active Substance: METFORMIN HYDROCHLORIDE
     Dosage: 500 MG, QD
     Route: 048
  4. Essentiale extreme [Concomitant]
     Dosage: 300 MG, BID
     Route: 048
  5. AMILORIDE HYDROCHLORIDE\HYDROCHLOROTHIAZIDE [Concomitant]
     Active Substance: AMILORIDE HYDROCHLORIDE\HYDROCHLOROTHIAZIDE
     Route: 048
  6. Synaleve [Concomitant]
     Dosage: 2 DF, TID
     Route: 048
  7. CLINDAMYCIN [Concomitant]
     Active Substance: CLINDAMYCIN
     Route: 048
  8. FLUCONAZOLE [Concomitant]
     Active Substance: FLUCONAZOLE
     Route: 048
  9. ETORICOXIB [Concomitant]
     Active Substance: ETORICOXIB
     Dosage: 120 MG, QD
     Route: 048
  10. CETIRIZINE HYDROCHLORIDE [Concomitant]
     Active Substance: CETIRIZINE HYDROCHLORIDE
     Route: 048
  11. ACETYLCYSTEINE [Concomitant]
     Active Substance: ACETYLCYSTEINE
     Route: 048
  12. Allergex [Concomitant]
     Route: 048
  13. Acurate [Concomitant]
     Route: 048
  14. ECOTRIN [Concomitant]
     Active Substance: ASPIRIN
     Dosage: 81 MG, OM
     Route: 048

REACTIONS (1)
  - Bedridden [None]
